FAERS Safety Report 18105547 (Version 1)
Quarter: 2020Q3

REPORT INFORMATION
  Report Type: Report from Study
  Country: US (occurrence: US)
  Receive Date: 20200804
  Receipt Date: 20200804
  Transmission Date: 20201103
  Serious: Yes (Hospitalization, Other)
  Sender: FDA-Public Use
  Company Number: US-SA-2015SA117756

PATIENT

DRUGS (2)
  1. ALEMTUZUMAB [Suspect]
     Active Substance: ALEMTUZUMAB
     Indication: MULTIPLE SCLEROSIS
     Dosage: 12 MG,QD
     Route: 041
     Dates: start: 20150622, end: 20150626
  2. NITROFURANTOIN. [Concomitant]
     Active Substance: NITROFURANTOIN
     Indication: CYSTITIS
     Dosage: 50 MG

REACTIONS (12)
  - Ear injury [Not Recovered/Not Resolved]
  - Aphonia [Unknown]
  - Urinary tract infection [Not Recovered/Not Resolved]
  - Coma [Unknown]
  - Dysphonia [Recovering/Resolving]
  - Dyspnoea [Recovered/Resolved]
  - Cystitis [Not Recovered/Not Resolved]
  - Blood urine present [Unknown]
  - Hospitalisation [Unknown]
  - Cough [Recovered/Resolved]
  - Ear lobe infection [Recovered/Resolved]
  - Memory impairment [Not Recovered/Not Resolved]

NARRATIVE: CASE EVENT DATE: 2015
